FAERS Safety Report 16163670 (Version 1)
Quarter: 2019Q2

REPORT INFORMATION
  Report Type: Report from Study
  Country: CO (occurrence: CO)
  Receive Date: 20190405
  Receipt Date: 20190405
  Transmission Date: 20190711
  Serious: Yes (Hospitalization, Other)
  Sender: FDA-Public Use
  Company Number: CO-UCBSA-2019014281

PATIENT
  Age: 67 Year
  Sex: Male

DRUGS (1)
  1. ROTIGOTINE [Suspect]
     Active Substance: ROTIGOTINE
     Indication: PARKINSON^S DISEASE
     Dosage: 4 MG, ONCE DAILY (QD)
     Route: 062
     Dates: start: 20170627

REACTIONS (3)
  - Pancreatitis [Recovering/Resolving]
  - Bile duct obstruction [Recovering/Resolving]
  - Acinetobacter infection [Recovering/Resolving]

NARRATIVE: CASE EVENT DATE: 20190225
